FAERS Safety Report 4937324-5 (Version None)
Quarter: 2006Q1

REPORT INFORMATION
  Report Type: 
  Country: None (occurrence: None)
  Receive Date: 20060306
  Receipt Date: 20060223
  Transmission Date: 20060701
  Serious: Yes (Hospitalization, Other)
  Sender: FDA-Public Use
  Company Number: 2005144288

PATIENT
  Sex: Male
  Weight: 78.0187 kg

DRUGS (11)
  1. ZOLOFT [Suspect]
     Indication: AGITATION
     Dosage: 50 MG (1 IN 1 D)
  2. ZOLOFT [Suspect]
     Indication: ANXIETY
     Dosage: 50 MG (1 IN 1 D)
  3. ZOLOFT [Suspect]
     Indication: BLOOD PRESSURE INCREASED
     Dosage: 50 MG (1 IN 1 D)
  4. ZOLOFT [Suspect]
     Indication: OBSESSIVE-COMPULSIVE DISORDER
     Dosage: 50 MG (1 IN 1 D)
  5. NORVASC [Suspect]
     Indication: HYPERTENSION
     Dosage: ORAL
     Route: 048
     Dates: start: 20050829
  6. TAMSULOSIN HCL [Suspect]
     Indication: PROSTATE EXAMINATION ABNORMAL
     Dates: start: 20050829, end: 20050101
  7. VICODIN [Suspect]
     Indication: PAIN
     Dates: start: 20050101
  8. VALSARTAN [Concomitant]
  9. HYDROCHLOROTHIAZIDE [Concomitant]
  10. ALL OTHER THERAPEUTIC PRODUCTS (ALL OTHER THERAPEUTIC PRODUCTS) [Concomitant]
  11. NEXIUM [Concomitant]

REACTIONS (9)
  - CONSTIPATION [None]
  - DIZZINESS [None]
  - DYSURIA [None]
  - ERECTILE DYSFUNCTION [None]
  - ERUCTATION [None]
  - FLATULENCE [None]
  - HYPERSENSITIVITY [None]
  - METASTASES TO LYMPH NODES [None]
  - RENAL CELL CARCINOMA STAGE UNSPECIFIED [None]
